FAERS Safety Report 8068453-8 (Version None)
Quarter: 2012Q1

REPORT INFORMATION
  Report Type: 
  Country: None (occurrence: None)
  Receive Date: 20120124
  Receipt Date: 20111026
  Transmission Date: 20120608
  Serious: No
  Sender: FDA-Public Use
  Company Number: US-AMGEN-USASP2011055844

PATIENT
  Age: 76 Year
  Sex: Female

DRUGS (10)
  1. ASPIRIN [Concomitant]
     Dosage: UNK
  2. ZETIA [Concomitant]
     Dosage: UNK
  3. METOPROLOL TARTRATE [Concomitant]
     Dosage: UNK
  4. PROLIA [Suspect]
     Indication: OSTEOPOROSIS POSTMENOPAUSAL
     Dosage: 60 MG, Q6MO
     Dates: start: 20110927
  5. VITAMIN D [Concomitant]
     Dosage: 1 IU, UNK
  6. BENAZEPRIL HYDROCHLORIDE [Concomitant]
     Dosage: UNK
  7. FOLTX [Concomitant]
     Dosage: UNK
  8. NIFEDIPINE [Concomitant]
     Dosage: UNK
  9. CLONAZEPAM [Concomitant]
     Dosage: UNK
  10. ZEMPLAR [Concomitant]
     Dosage: UNK

REACTIONS (2)
  - CONTUSION [None]
  - CYSTITIS [None]
